FAERS Safety Report 5028741-6 (Version None)
Quarter: 2006Q2

REPORT INFORMATION
  Report Type: 
  Country: None (occurrence: None)
  Receive Date: 20060619
  Receipt Date: 20060423
  Transmission Date: 20061013
  Serious: Yes (Hospitalization)
  Sender: FDA-Public Use
  Company Number: BE-BRISTOL-MYERS SQUIBB COMPANY-13354725

PATIENT
  Age: 81 Year
  Sex: Female

DRUGS (12)
  1. IRBESARTAN [Suspect]
     Indication: HYPERTENSION
     Route: 048
     Dates: start: 20060201, end: 20060201
  2. VALSARTAN [Suspect]
     Dates: start: 20060201
  3. AMLODIPINE [Concomitant]
  4. FUROSEMIDE [Concomitant]
  5. LISINOPRIL [Concomitant]
  6. PERINDOPRIL ERUMINE [Concomitant]
  7. LEVODOPA + BENSERAZIDE [Concomitant]
  8. LEVOTHYROXINE SODIUM [Concomitant]
  9. ACETYLSALICYLZUUR CARDIO [Concomitant]
  10. MOLSIDOMINE [Concomitant]
  11. DILTIAZEM HCL [Concomitant]
  12. RANITIDINE [Concomitant]

REACTIONS (2)
  - BLOOD PRESSURE DECREASED [None]
  - LOSS OF CONSCIOUSNESS [None]
